FAERS Safety Report 23700848 (Version 2)
Quarter: 2024Q2

REPORT INFORMATION
  Report Type: Spontaneous
  Country: TR (occurrence: TR)
  Receive Date: 20240403
  Receipt Date: 20240412
  Transmission Date: 20240715
  Serious: Yes (Life-Threatening, Hospitalization, Other)
  Sender: FDA-Public Use
  Company Number: TR-MLMSERVICE-20240322-4904785-1

PATIENT
  Age: 16 Year
  Sex: Female

DRUGS (1)
  1. METFORMIN [Suspect]
     Active Substance: METFORMIN HYDROCHLORIDE
     Indication: Product used for unknown indication
     Dosage: INGESTION OF HIGH DOSES 40 TABLETS
     Route: 048

REACTIONS (9)
  - Vasoplegia syndrome [Recovering/Resolving]
  - Ventricular tachycardia [Recovering/Resolving]
  - Circulatory collapse [Recovering/Resolving]
  - Left ventricular dysfunction [Recovering/Resolving]
  - Pericardial effusion [Recovered/Resolved]
  - Intentional overdose [Recovering/Resolving]
  - Hyperlactacidaemia [Recovering/Resolving]
  - Toxicity to various agents [Recovering/Resolving]
  - Suicide attempt [Recovered/Resolved]
